FAERS Safety Report 21441312 (Version 1)
Quarter: 2022Q4

REPORT INFORMATION
  Report Type: Spontaneous
  Country: US (occurrence: US)
  Receive Date: 20221011
  Receipt Date: 20221011
  Transmission Date: 20230112
  Serious: Yes (Hospitalization, Other)
  Sender: FDA-Public Use
  Company Number: US-INCYTE CORPORATION-2022IN009674

PATIENT

DRUGS (1)
  1. JAKAFI [Suspect]
     Active Substance: RUXOLITINIB
     Indication: Polycythaemia vera
     Dosage: 10 MILLIGRAM, QD (5 DAYS A WEEK, HOLD ON THURSDAY AND SUNDAY)
     Route: 048

REACTIONS (2)
  - Femur fracture [Unknown]
  - Product availability issue [Unknown]

NARRATIVE: CASE EVENT DATE: 20220929
